FAERS Safety Report 11865735 (Version 2)
Quarter: 2016Q1

REPORT INFORMATION
  Report Type: Spontaneous
  Country: AU (occurrence: AU)
  Receive Date: 20151223
  Receipt Date: 20160209
  Transmission Date: 20160526
  Serious: Yes (Other)
  Sender: FDA-Public Use
  Company Number: AU-ASTELLAS-2015US047834

PATIENT
  Age: 79 Year
  Sex: Male

DRUGS (1)
  1. XTANDI [Suspect]
     Active Substance: ENZALUTAMIDE
     Indication: EJECTION FRACTION DECREASED
     Dosage: 80 MG PER DAY (UNKNOWN FREQ)
     Route: 065
     Dates: start: 2015, end: 2015

REACTIONS (2)
  - Atrioventricular block [Not Recovered/Not Resolved]
  - Underdose [Unknown]
